FAERS Safety Report 7306537-X (Version None)
Quarter: 2011Q1

REPORT INFORMATION
  Report Type: 
  Country: None (occurrence: None)
  Receive Date: 20110222
  Receipt Date: 20110215
  Transmission Date: 20110831
  Serious: Yes (Hospitalization, Other)
  Sender: FDA-Public Use
  Company Number: DE-ABBOTT-10P-062-0648177-00

PATIENT
  Age: 72 Year
  Sex: Male
  Weight: 68 kg

DRUGS (7)
  1. TORASEMID [Concomitant]
     Indication: HYPERTENSION
     Dates: start: 20051222
  2. NEBIVOLOL [Concomitant]
     Indication: HYPERTENSION
     Dates: start: 20070330
  3. RENAGEL [Concomitant]
     Indication: RENAL FAILURE
     Route: 048
     Dates: start: 20070330
  4. ZEMPLAR [Suspect]
     Indication: HYPERPARATHYROIDISM SECONDARY
     Route: 042
     Dates: start: 20090324
  5. VALSARTAN [Concomitant]
     Indication: HYPERTENSION
     Dates: start: 20050921
  6. ARANESP [Concomitant]
     Indication: ANAEMIA
  7. RAMIPRIL [Concomitant]
     Indication: HYPERTENSION
     Route: 048
     Dates: start: 20051222

REACTIONS (4)
  - TRAUMATIC BRAIN INJURY [None]
  - CONCUSSION [None]
  - SKULL FRACTURE [None]
  - SUBARACHNOID HAEMORRHAGE [None]
